FAERS Safety Report 4564630-9 (Version None)
Quarter: 2005Q1

REPORT INFORMATION
  Report Type: 
  Country: None (occurrence: None)
  Receive Date: 20050126
  Receipt Date: 20050119
  Transmission Date: 20050727
  Serious: No
  Sender: FDA-Public Use
  Company Number: 2005UW00981

PATIENT
  Sex: Male

DRUGS (6)
  1. IRESSA [Suspect]
     Dosage: 250 MG DAILY PO
     Route: 048
     Dates: start: 20050105
  2. NAPROXEN [Suspect]
     Dates: start: 20040601, end: 20050119
  3. DILANTIN [Concomitant]
  4. PERCOCET [Concomitant]
  5. ARTHROTEC [Concomitant]
  6. RABEPRAZOLE SODIUM [Concomitant]

REACTIONS (5)
  - CHEST PAIN [None]
  - DRUG INTERACTION [None]
  - OCULAR HYPERAEMIA [None]
  - PAIN IN EXTREMITY [None]
  - VISUAL ACUITY REDUCED [None]
